FAERS Safety Report 4848839-2 (Version None)
Quarter: 2005Q4

REPORT INFORMATION
  Report Type: 
  Country: None (occurrence: None)
  Receive Date: 20051115
  Receipt Date: 20050812
  Transmission Date: 20060501
  Serious: Yes (Other)
  Sender: FDA-Public Use
  Company Number: 389097

PATIENT
  Age: 51 Year
  Sex: Male
  Weight: 63.5 kg

DRUGS (6)
  1. PEGASYS [Suspect]
     Dosage: 180 MCG 1 PER WEEK SUBCUTANEOUS
     Route: 058
     Dates: start: 20040924, end: 20041207
  2. COPEGUS [Suspect]
     Dosage: 1200 MG DAILY ORAL
     Route: 048
     Dates: start: 20040924, end: 20041207
  3. MVI (MULTIVITAMIN NOS) [Concomitant]
  4. VITAMIN C (ASCORBIC ACID) [Concomitant]
  5. SYNTHROID [Concomitant]
  6. VITAMIN E (ALPHA-TOCOPHEROL) [Concomitant]

REACTIONS (3)
  - RETINAL EXUDATES [None]
  - RETINAL HAEMORRHAGE [None]
  - RETINOPATHY [None]
